FAERS Safety Report 12683314 (Version 2)
Quarter: 2016Q3

REPORT INFORMATION
  Report Type: Spontaneous
  Country: US (occurrence: US)
  Receive Date: 20160825
  Receipt Date: 20160901
  Transmission Date: 20161109
  Serious: Yes (Other)
  Sender: FDA-Public Use
  Company Number: US-APOTEX-2016AP010611

PATIENT
  Age: 70 Year
  Sex: Female

DRUGS (1)
  1. TRAVOPROST OPHTHALMIC SOLUTION, USP (IONIC BUFFERED SOLUTION) [Suspect]
     Active Substance: TRAVOPROST
     Indication: INTRAOCULAR PRESSURE INCREASED
     Dosage: UNK
     Route: 065

REACTIONS (1)
  - Lipodystrophy acquired [Recovering/Resolving]
